FAERS Safety Report 5443637-3 (Version None)
Quarter: 2007Q3

REPORT INFORMATION
  Report Type: 
  Country: None (occurrence: None)
  Receive Date: 20070905
  Receipt Date: 20070831
  Transmission Date: 20080115
  Serious: Yes (Hospitalization)
  Sender: FDA-Public Use
  Company Number: JP-GILEAD-2005-0008844

PATIENT
  Sex: Male

DRUGS (36)
  1. HEPSERA [Suspect]
     Indication: HEPATITIS B
     Route: 048
     Dates: start: 20031113
  2. ZEFFIX [Suspect]
     Indication: HEPATITIS B
     Route: 048
     Dates: start: 20011023
  3. ZEFFIX [Suspect]
     Indication: HEPATIC CIRRHOSIS
  4. WARFARIN SODIUM [Concomitant]
     Route: 065
  5. ANPLAG [Concomitant]
     Route: 065
  6. SELBEX [Concomitant]
     Route: 065
  7. DIART [Concomitant]
     Route: 065
  8. DIGOSIN [Concomitant]
     Route: 065
  9. FAMOTIDINE [Concomitant]
     Route: 065
  10. ALDACTONE [Concomitant]
     Route: 065
  11. SLOW-K [Concomitant]
     Route: 065
  12. BROTIZOLAM [Concomitant]
     Route: 065
  13. ALPRAZOLAM [Concomitant]
     Route: 065
  14. NIZATIDINE [Concomitant]
     Route: 065
  15. OXETHAZAINE [Concomitant]
     Route: 065
  16. DIMETHICONE [Concomitant]
     Route: 065
  17. PURSENNID [Concomitant]
     Route: 065
  18. TIZANIDINE HCL [Concomitant]
     Route: 065
  19. CEFCAPENE PIVOXIL [Concomitant]
     Route: 065
  20. ALCLOMETASONE DIPROPION [Concomitant]
     Route: 065
  21. LOXOPROFEN [Concomitant]
     Route: 065
  22. ZOLPIDEM TARTRATE [Concomitant]
     Route: 065
  23. MAGNESIUM OXIDE [Concomitant]
     Route: 065
  24. DIAGNOSTIC DYE [Concomitant]
     Route: 065
  25. IODISED OIL [Concomitant]
     Route: 065
  26. FLOMOXEF [Concomitant]
     Route: 065
  27. HEPARIN [Concomitant]
     Route: 065
  28. CHINESE MEDICATION [Concomitant]
     Route: 065
  29. ATROPINE SULFATE [Concomitant]
     Route: 065
  30. HYDROXYZINE PAMOATE [Concomitant]
     Route: 065
  31. ADONA [Concomitant]
     Route: 065
  32. TRANEXAMIC ACID [Concomitant]
     Route: 065
  33. ACTIT [Concomitant]
     Route: 065
  34. POTACOL R [Concomitant]
     Route: 065
  35. ELECTROLYTES [Concomitant]
     Route: 065
  36. ETHANOL [Concomitant]
     Route: 065

REACTIONS (1)
  - HEPATIC NEOPLASM MALIGNANT [None]
